FAERS Safety Report 13243883 (Version 1)
Quarter: 2017Q1

REPORT INFORMATION
  Report Type: Spontaneous
  Country: US (occurrence: US)
  Receive Date: 20170217
  Receipt Date: 20170217
  Transmission Date: 20170428
  Serious: Yes (Hospitalization)
  Sender: FDA-Public Use
  Company Number: None

PATIENT
  Age: 37 Year
  Sex: Male
  Weight: 100.51 kg

DRUGS (3)
  1. G-CSF (FILGRASTIM, AMGEN) [Suspect]
     Active Substance: FILGRASTIM
     Dates: end: 20170206
  2. IFOSFAMIDE. [Suspect]
     Active Substance: IFOSFAMIDE
     Dates: end: 20170206
  3. TAXOL [Suspect]
     Active Substance: PACLITAXEL
     Dates: end: 20170203

REACTIONS (2)
  - Therapy non-responder [None]
  - Bone pain [None]

NARRATIVE: CASE EVENT DATE: 20170209
